FAERS Safety Report 20450168 (Version 1)
Quarter: 2022Q1

REPORT INFORMATION
  Report Type: Spontaneous
  Country: US (occurrence: None)
  Receive Date: 20220205
  Receipt Date: 20220205
  Transmission Date: 20220424
  Serious: Yes (Life-Threatening, Hospitalization, Other)
  Sender: FDA-Public Use
  Company Number: None

PATIENT
  Sex: 0

DRUGS (1)
  1. AZO [Suspect]
     Active Substance: PHENAZOPYRIDINE HYDROCHLORIDE

REACTIONS (3)
  - Malaise [None]
  - Drug ineffective [None]
  - Product communication issue [None]
